FAERS Safety Report 18654061 (Version 1)
Quarter: 2020Q4

REPORT INFORMATION
  Report Type: Spontaneous
  Country: US (occurrence: US)
  Receive Date: 20201223
  Receipt Date: 20201223
  Transmission Date: 20210114
  Serious: No
  Sender: FDA-Public Use
  Company Number: US-TAKEDA-US202000276

PATIENT
  Age: 69 Year
  Sex: Female
  Weight: 79.37 kg

DRUGS (8)
  1. GATTEX [Suspect]
     Active Substance: TEDUGLUTIDE\WATER
     Indication: PRODUCT USED FOR UNKNOWN INDICATION
     Dosage: 0.3800 UNIT UNKOWN, 1X/DAY:QD
     Route: 058
     Dates: start: 20190930
  2. GATTEX [Suspect]
     Active Substance: TEDUGLUTIDE\WATER
     Indication: PRODUCT USED FOR UNKNOWN INDICATION
     Dosage: 0.3800 UNIT UNKOWN, 1X/DAY:QD
     Route: 058
     Dates: start: 20190930
  3. GATTEX [Suspect]
     Active Substance: TEDUGLUTIDE\WATER
     Indication: PRODUCT USED FOR UNKNOWN INDICATION
     Dosage: 0.3800 UNIT UNKOWN, 1X/DAY:QD
     Route: 058
     Dates: start: 20190930
  4. GATTEX [Suspect]
     Active Substance: TEDUGLUTIDE\WATER
     Indication: PRODUCT USED FOR UNKNOWN INDICATION
     Dosage: 0.3800 UNIT UNKOWN, 1X/DAY:QD
     Route: 058
     Dates: start: 20190930
  5. GATTEX [Suspect]
     Active Substance: TEDUGLUTIDE\WATER
     Dosage: 5.5 MILLIGRAM, QD
     Route: 058
  6. GATTEX [Suspect]
     Active Substance: TEDUGLUTIDE\WATER
     Dosage: 5.5 MILLIGRAM, QD
     Route: 058
  7. GATTEX [Suspect]
     Active Substance: TEDUGLUTIDE\WATER
     Dosage: 5.5 MILLIGRAM, QD
     Route: 058
  8. GATTEX [Suspect]
     Active Substance: TEDUGLUTIDE\WATER
     Dosage: 5.5 MILLIGRAM, QD
     Route: 058

REACTIONS (3)
  - Incorrect dose administered [Unknown]
  - Product dose omission issue [Recovering/Resolving]
  - No adverse event [Unknown]

NARRATIVE: CASE EVENT DATE: 20200106
